FAERS Safety Report 7469450-3 (Version None)
Quarter: 2011Q2

REPORT INFORMATION
  Report Type: 
  Country: None (occurrence: None)
  Receive Date: 20110506
  Receipt Date: 20110506
  Transmission Date: 20111010
  Serious: No
  Sender: FDA-Public Use
  Company Number: None

PATIENT
  Age: 10 Year
  Sex: Female
  Weight: 29.4838 kg

DRUGS (1)
  1. LEVAQUIN [Suspect]
     Indication: PNEUMONIA MYCOPLASMAL
     Dosage: 1/2 PIL 1 TIME PER DAY PO
     Route: 048
     Dates: start: 20110504, end: 20110504

REACTIONS (1)
  - DRUG PRESCRIBING ERROR [None]
